FAERS Safety Report 4952823-8 (Version None)
Quarter: 2006Q1

REPORT INFORMATION
  Report Type: 
  Country: None (occurrence: None)
  Receive Date: 20060324
  Receipt Date: 20060315
  Transmission Date: 20060701
  Serious: Yes (Life-Threatening)
  Sender: FDA-Public Use
  Company Number: FR-JNJFOC-20060304112

PATIENT
  Age: 74 Year
  Sex: Female

DRUGS (3)
  1. HALDOL [Suspect]
     Route: 048
  2. TERALITHE [Concomitant]
     Route: 048
  3. PAROXETINE HYDROCHLORIDE [Concomitant]
     Route: 048

REACTIONS (1)
  - BUNDLE BRANCH BLOCK LEFT [None]
